FAERS Safety Report 12976088 (Version 6)
Quarter: 2018Q1

REPORT INFORMATION
  Report Type: Report from Study
  Country: US (occurrence: US)
  Receive Date: 20161126
  Receipt Date: 20180123
  Transmission Date: 20180508
  Serious: Yes (Other)
  Sender: FDA-Public Use
  Company Number: PHHY2016US160039

PATIENT
  Age: 47 Year
  Sex: Female

DRUGS (1)
  1. GILENYA [Suspect]
     Active Substance: FINGOLIMOD HYDROCHLORIDE
     Indication: MULTIPLE SCLEROSIS
     Dosage: UNK UNK, QD
     Route: 048

REACTIONS (32)
  - Sinus congestion [Unknown]
  - Ear pain [Recovered/Resolved]
  - Bradycardia [Unknown]
  - Urinary tract infection [Recovered/Resolved]
  - Lymphocyte count decreased [Unknown]
  - Balance disorder [Unknown]
  - Pain in extremity [Unknown]
  - Fibromyalgia [Unknown]
  - Milia [Unknown]
  - Tendon sheath disorder [Unknown]
  - Irritability [Unknown]
  - Meniscus injury [Recovered/Resolved]
  - Hypersensitivity [Unknown]
  - Urticaria [Recovered/Resolved]
  - Cough [Recovered/Resolved]
  - Depression [Unknown]
  - Solar lentigo [Unknown]
  - Dysaesthesia [Recovered/Resolved]
  - Fall [Recovered/Resolved]
  - Concomitant disease aggravated [Recovered/Resolved]
  - Flank pain [Recovered/Resolved]
  - Birth mark [Unknown]
  - Fatigue [Recovered/Resolved]
  - Tooth abscess [Unknown]
  - Pruritus [Recovered/Resolved]
  - Haemangioma of skin [Unknown]
  - Gastrooesophageal reflux disease [Unknown]
  - Gait disturbance [Unknown]
  - Essential hypertension [Unknown]
  - Seborrhoeic keratosis [Unknown]
  - Synovial cyst [Unknown]
  - Peripheral swelling [Recovered/Resolved]

NARRATIVE: CASE EVENT DATE: 20160929
